FAERS Safety Report 5773992-6 (Version None)
Quarter: 2008Q2

REPORT INFORMATION
  Report Type: 
  Country: None (occurrence: None)
  Receive Date: 20080616
  Receipt Date: 20080602
  Transmission Date: 20081010
  Serious: Yes (Death, Hospitalization, Other)
  Sender: FDA-Public Use
  Company Number: US-ROCHE-474382

PATIENT
  Age: 59 Year
  Sex: Female

DRUGS (2)
  1. CAPECITABINE [Suspect]
     Indication: GASTROINTESTINAL CARCINOMA
     Dosage: CYCLE 1 ONLY. FOR 2 WEEKS ON AND 1 WEEK OFF
     Route: 048
  2. CAPECITABINE [Suspect]
     Dosage: CYCLE 2 AND 3 ONLY.  FOR 2 WEEKS ON AND 1 WEEK OFF
     Route: 048

REACTIONS (5)
  - DIARRHOEA [None]
  - DRUG TOXICITY [None]
  - GASTROENTERITIS [None]
  - MULTI-ORGAN FAILURE [None]
  - RESPIRATORY DISTRESS [None]
